FAERS Safety Report 19866496 (Version 10)
Quarter: 2022Q1

REPORT INFORMATION
  Report Type: Report from Study
  Country: JP (occurrence: JP)
  Receive Date: 20210922
  Receipt Date: 20220331
  Transmission Date: 20220424
  Serious: Yes (Hospitalization, Other)
  Sender: FDA-Public Use
  Company Number: JP-NOVARTISPH-NVSJ2021JP007867

PATIENT
  Age: 18 Year
  Sex: Male
  Weight: 62.8 kg

DRUGS (25)
  1. ILARIS [Suspect]
     Active Substance: CANAKINUMAB
     Indication: Still^s disease
     Dosage: 240 MG
     Route: 058
     Dates: start: 20200110
  2. ILARIS [Suspect]
     Active Substance: CANAKINUMAB
     Dosage: 240 MG
     Route: 058
     Dates: start: 20200313
  3. ILARIS [Suspect]
     Active Substance: CANAKINUMAB
     Dosage: 240 MG
     Route: 058
     Dates: start: 20200410
  4. ILARIS [Suspect]
     Active Substance: CANAKINUMAB
     Dosage: 240 MG
     Route: 058
     Dates: start: 20200508
  5. ILARIS [Suspect]
     Active Substance: CANAKINUMAB
     Dosage: 240 MG
     Route: 058
     Dates: start: 20200608
  6. ILARIS [Suspect]
     Active Substance: CANAKINUMAB
     Dosage: 240 MG
     Route: 058
     Dates: start: 20200706
  7. ILARIS [Suspect]
     Active Substance: CANAKINUMAB
     Dosage: 240 MG
     Route: 058
     Dates: start: 20200803
  8. ILARIS [Suspect]
     Active Substance: CANAKINUMAB
     Dosage: 240 MG
     Route: 058
     Dates: start: 20200831
  9. ILARIS [Suspect]
     Active Substance: CANAKINUMAB
     Dosage: 240 MG
     Route: 058
     Dates: start: 20201228
  10. ILARIS [Suspect]
     Active Substance: CANAKINUMAB
     Dosage: 240 MG
     Route: 058
     Dates: start: 20210301
  11. ILARIS [Suspect]
     Active Substance: CANAKINUMAB
     Dosage: 240 MG
     Route: 058
     Dates: start: 20210329
  12. ILARIS [Suspect]
     Active Substance: CANAKINUMAB
     Dosage: 240 MG
     Route: 058
     Dates: start: 20210827
  13. ILARIS [Suspect]
     Active Substance: CANAKINUMAB
     Dosage: 262.5 MG
     Route: 058
     Dates: start: 20210924
  14. ILARIS [Suspect]
     Active Substance: CANAKINUMAB
     Dosage: 300 MG
     Route: 058
     Dates: start: 20211022
  15. ILARIS [Suspect]
     Active Substance: CANAKINUMAB
     Dosage: 300 MG
     Route: 058
     Dates: start: 20211119
  16. NEORAL [Suspect]
     Active Substance: CYCLOSPORINE
     Indication: Still^s disease
     Dosage: 200 MG
     Route: 048
     Dates: start: 20191225, end: 20210826
  17. NEORAL [Suspect]
     Active Substance: CYCLOSPORINE
     Dosage: 250 MG
     Route: 048
     Dates: start: 20210827, end: 20210908
  18. PREDONINE [Suspect]
     Active Substance: PREDNISOLONE
     Indication: Still^s disease
     Dosage: 20 MG
     Route: 048
     Dates: start: 20200110, end: 20200705
  19. PREDONINE [Suspect]
     Active Substance: PREDNISOLONE
     Dosage: 10 MG
     Route: 048
     Dates: start: 20200706, end: 20210228
  20. PREDONINE [Suspect]
     Active Substance: PREDNISOLONE
     Dosage: 30 MG
     Route: 048
     Dates: start: 20210301, end: 20210908
  21. PREDONINE [Suspect]
     Active Substance: PREDNISOLONE
     Dosage: 35 MG
     Route: 048
     Dates: start: 20210927, end: 20211118
  22. PREDONINE [Suspect]
     Active Substance: PREDNISOLONE
     Dosage: 20 MG
     Route: 048
     Dates: start: 20211119
  23. DAPSONE [Suspect]
     Active Substance: DAPSONE
     Indication: Product used for unknown indication
     Dosage: 100 MG
     Route: 048
     Dates: start: 20210827, end: 20210908
  24. CYCLOSPORINE [Concomitant]
     Active Substance: CYCLOSPORINE
     Indication: Still^s disease
     Dosage: 250 MG
     Route: 048
     Dates: start: 20211001, end: 20211007
  25. CYCLOSPORINE [Concomitant]
     Active Substance: CYCLOSPORINE
     Dosage: 200 MG
     Route: 048
     Dates: start: 20211008

REACTIONS (16)
  - Still^s disease [Recovered/Resolved]
  - Condition aggravated [Recovered/Resolved]
  - Haemophagocytic lymphohistiocytosis [Recovered/Resolved]
  - Osteonecrosis [Unknown]
  - Lymphocyte count decreased [Unknown]
  - Hypertension [Recovering/Resolving]
  - Aspartate aminotransferase increased [Recovered/Resolved]
  - Hypertriglyceridaemia [Recovered/Resolved]
  - Subcutaneous abscess [Recovering/Resolving]
  - Methaemoglobinaemia [Recovered/Resolved]
  - Hyperuricaemia [Recovered/Resolved]
  - Concomitant disease aggravated [Recovered/Resolved]
  - Pustule [Recovering/Resolving]
  - Hepatic function abnormal [Recovered/Resolved]
  - Inappropriate schedule of product administration [Unknown]
  - Product use in unapproved indication [Unknown]

NARRATIVE: CASE EVENT DATE: 20200402
